FAERS Safety Report 7145242-X (Version None)
Quarter: 2010Q4

REPORT INFORMATION
  Report Type: 
  Country: None (occurrence: None)
  Receive Date: 20101208
  Receipt Date: 20100728
  Transmission Date: 20110411
  Serious: Yes (Hospitalization)
  Sender: FDA-Public Use
  Company Number: PHHO2010US11531

PATIENT
  Sex: Female

DRUGS (3)
  1. STI571/CGP57148B T35717+TAB [Suspect]
     Indication: PULMONARY ARTERIAL HYPERTENSION
     Dosage: DOSE BLINDED
     Route: 048
     Dates: start: 20100722
  2. LOVENOX [Suspect]
  3. COUMADIN [Concomitant]

REACTIONS (6)
  - ABDOMINAL WALL HAEMATOMA [None]
  - BACK PAIN [None]
  - HAEMATOCRIT DECREASED [None]
  - HAEMOGLOBIN DECREASED [None]
  - MUSCULOSKELETAL CHEST PAIN [None]
  - PAIN IN EXTREMITY [None]
